FAERS Safety Report 15287568 (Version 1)
Quarter: 2018Q3

REPORT INFORMATION
  Report Type: Spontaneous
  Country: GB (occurrence: GB)
  Receive Date: 20180817
  Receipt Date: 20180817
  Transmission Date: 20181010
  Serious: Yes (Other)
  Sender: FDA-Public Use
  Company Number: GB-TEVA-2018-GB-943168

PATIENT
  Sex: Female

DRUGS (1)
  1. TRIMETHOPRIM TABLETS 100 MG [Suspect]
     Active Substance: TRIMETHOPRIM
     Indication: URINARY TRACT INFECTION
     Dates: start: 201710

REACTIONS (2)
  - Hypersensitivity [Recovered/Resolved]
  - Documented hypersensitivity to administered product [Recovered/Resolved]
